FAERS Safety Report 8762355 (Version 1)
Quarter: 2012Q4

REPORT INFORMATION
  Report Type: 
  Country: US (occurrence: US)
  Receive Date: 20120829
  Receipt Date: 20120829
  Transmission Date: 20130627
  Serious: Yes (Hospitalization)
  Sender: FDA-Public Use
  Company Number: GXBR2012US001813

PATIENT
  Age: 9 None
  Sex: Female
  Weight: 36.28 kg

DRUGS (1)
  1. CEFTRIAXONE [Suspect]
     Indication: PNEUMONIA
     Dosage: 750 mg, ONCE/SINGLE
     Route: 030
     Dates: start: 20120813, end: 20120813

REACTIONS (6)
  - Guillain-Barre syndrome [Not Recovered/Not Resolved]
  - Muscular weakness [Not Recovered/Not Resolved]
  - Gait disturbance [Not Recovered/Not Resolved]
  - Dehydration [Unknown]
  - Hypotension [Unknown]
  - Weaning failure [Not Recovered/Not Resolved]
